FAERS Safety Report 14582219 (Version 1)
Quarter: 2018Q1

REPORT INFORMATION
  Report Type: Spontaneous
  Country: FR (occurrence: FR)
  Receive Date: 20180228
  Receipt Date: 20180228
  Transmission Date: 20180509
  Serious: Yes (Other)
  Sender: FDA-Public Use
  Company Number: FR-PFIZER INC-2018080973

PATIENT
  Age: 28 Year
  Sex: Male

DRUGS (3)
  1. VITAMIN K [Suspect]
     Active Substance: PHYTONADIONE
     Indication: HAEMORRHAGE PROPHYLAXIS
     Dosage: 0.5 ML, WEEKLY
     Route: 042
     Dates: start: 20180102
  2. CAFFEINE. [Suspect]
     Active Substance: CAFFEINE
     Indication: INFANTILE APNOEA
     Dosage: 1 DF, DAILY
     Route: 065
     Dates: start: 20180102
  3. CORDARONE [Suspect]
     Active Substance: AMIODARONE HYDROCHLORIDE
     Indication: SUPRAVENTRICULAR TACHYCARDIA
     Dosage: 1 DF, DAILY
     Route: 048
     Dates: start: 20180115, end: 20180131

REACTIONS (1)
  - Enterocolitis [Not Recovered/Not Resolved]

NARRATIVE: CASE EVENT DATE: 20180130
